FAERS Safety Report 20370475 (Version 1)
Quarter: 2022Q1

REPORT INFORMATION
  Report Type: Spontaneous
  Country: FR (occurrence: FR)
  Receive Date: 20220124
  Receipt Date: 20220124
  Transmission Date: 20220423
  Serious: Yes (Other)
  Sender: FDA-Public Use
  Company Number: FR-GSKCCFEMEA-Case-01399801_AE-53893

PATIENT
  Age: 63 Year
  Sex: Female

DRUGS (1)
  1. BECLOMETHASONE DIPROPIONATE [Suspect]
     Active Substance: BECLOMETHASONE DIPROPIONATE
     Indication: Asthma
     Dosage: UNK
     Dates: start: 20211220

REACTIONS (3)
  - Herpes ophthalmic [Unknown]
  - Nasal polyps [Unknown]
  - Off label use [Unknown]

NARRATIVE: CASE EVENT DATE: 20211220
